FAERS Safety Report 11310344 (Version 3)
Quarter: 2015Q3

REPORT INFORMATION
  Report Type: Spontaneous
  Country: JP (occurrence: JP)
  Receive Date: 20150724
  Receipt Date: 20150805
  Transmission Date: 20151125
  Serious: Yes (Death, Hospitalization, Disabling, Other)
  Sender: FDA-Public Use
  Company Number: JP-ASTRAZENECA-2015SE15080

PATIENT
  Age: 30228 Day
  Sex: Male
  Weight: 50 kg

DRUGS (15)
  1. GASTER [Concomitant]
     Active Substance: FAMOTIDINE
     Route: 048
     Dates: start: 20121003
  2. MUCOSTA [Concomitant]
     Active Substance: REBAMIPIDE
     Dosage: 100 MG, AT THE TIME OF AWAKENING, IN THE MORNING, BEFORE SLEEP (AFTER MEALS)
     Route: 048
     Dates: start: 20121003
  3. BLOPRESS [Concomitant]
     Active Substance: CANDESARTAN CILEXETIL
     Dosage: 8 MG, MORNINGS (AFTER MEALS)
     Route: 048
     Dates: start: 20121003
  4. GLYCEOL [Suspect]
     Active Substance: GLYCERIN
     Indication: BRAIN NEOPLASM
     Route: 065
     Dates: start: 20120822, end: 20120912
  5. POSTERISAN [Concomitant]
     Active Substance: LIDOCAINE
     Indication: PROCTALGIA
     Dosage: DOSE UNKNOWN, TWO TIMES A DAY
     Route: 065
     Dates: start: 20120910
  6. RINDERON VG [Concomitant]
     Active Substance: BETAMETHASONE VALERATE\GENTAMICIN SULFATE
     Indication: ANAL EROSION
     Dosage: DOSE UNKNOWN
     Route: 065
     Dates: start: 20120912
  7. ALLOZYM [Concomitant]
     Active Substance: ALLOPURINOL
     Dosage: 100 MG, MORNINGS (AFTER MEALS)
     Route: 048
     Dates: start: 20121003
  8. RADIOTHERAPY [Interacting]
     Active Substance: RADIATION THERAPY
     Route: 065
  9. LOXONIN [Concomitant]
     Active Substance: LOXOPROFEN SODIUM
     Indication: PROCTALGIA
     Dosage: 60 MG, THREE TIMES DAILY, AT THE TIME OF AWAKENING, IN THE MORNING, BEFORE SLEEP (AFTER MEALS)
     Route: 048
     Dates: start: 20120913
  10. FLUITRAN [Concomitant]
     Active Substance: TRICHLORMETHIAZIDE
     Dosage: 2 MG, MORNINGS (AFTER MEALS)
     Route: 048
     Dates: start: 20121003
  11. LECICARBON [Concomitant]
     Active Substance: SODIUM BICARBONATE\SODIUM PHOSPHATE, MONOBASIC
     Indication: HAEMORRHOIDS
     Dosage: DOSE UNKNOWN
     Route: 054
     Dates: start: 20120907
  12. BIFISGEN [Concomitant]
     Dosage: 1 G, MORNINGS, NOONS, EVENINGS (AFTER MEALS)
     Route: 065
     Dates: start: 20121003
  13. IRESSA [Interacting]
     Active Substance: GEFITINIB
     Indication: LUNG NEOPLASM MALIGNANT
     Route: 048
     Dates: start: 20120914, end: 20121009
  14. EXCEGRAN [Concomitant]
     Active Substance: ZONISAMIDE
     Dosage: 100 MG, MORNINGS AND EVENINGS (AFTER MEALS)
     Route: 048
     Dates: start: 20121003
  15. DEPAS [Concomitant]
     Active Substance: ETIZOLAM
     Dosage: 0.5 MG, BEFORE SLEEP
     Route: 048
     Dates: start: 20121003

REACTIONS (22)
  - Radiation interaction [Fatal]
  - Dysphagia [Not Recovered/Not Resolved]
  - Circulatory collapse [Fatal]
  - Partial seizures [Unknown]
  - Tumour marker increased [Unknown]
  - Diarrhoea [Not Recovered/Not Resolved]
  - Alanine aminotransferase increased [Unknown]
  - Gamma-glutamyltransferase increased [Unknown]
  - Nerve injury [Fatal]
  - Blood alkaline phosphatase increased [Unknown]
  - Anal erosion [Not Recovered/Not Resolved]
  - Blood lactate dehydrogenase increased [Unknown]
  - Respiratory failure [Fatal]
  - Gait disturbance [Unknown]
  - White blood cell count decreased [Unknown]
  - Neurogenic bladder [Fatal]
  - Epistaxis [Unknown]
  - Nervous system disorder [Fatal]
  - Mouth haemorrhage [Unknown]
  - Hyponatraemia [Not Recovered/Not Resolved]
  - Hepatic function abnormal [Not Recovered/Not Resolved]
  - Aspartate aminotransferase increased [Unknown]

NARRATIVE: CASE EVENT DATE: 20120914
